FAERS Safety Report 5070220-4 (Version None)
Quarter: 2006Q3

REPORT INFORMATION
  Report Type: 
  Country: None (occurrence: None)
  Receive Date: 20060731
  Receipt Date: 20060718
  Transmission Date: 20061208
  Serious: Yes (Death)
  Sender: FDA-Public Use
  Company Number: 2006EU002100

PATIENT

DRUGS (4)
  1. PROGRAF [Suspect]
     Indication: RENAL TRANSPLANT
     Dosage: 2.5 MG, BID, TRANSPLACENTAL
     Route: 064
  2. AZATHIOPRINE [Suspect]
     Indication: RENAL TRANSPLANT
     Dosage: 0.5 DF, BID, TRANSPLACENTAL
     Route: 064
  3. PREDNISONE TAB [Suspect]
     Indication: RENAL TRANSPLANT
     Dosage: 5 MG, UID/QD, TRANSPLACENTAL
     Route: 064
  4. ASPIRIN [Suspect]
     Dosage: 75 MG, UID/QD, TRANSPLACENTAL
     Route: 064

REACTIONS (3)
  - DRUG EXPOSURE DURING PREGNANCY [None]
  - ECHOGRAPHY ABNORMAL [None]
  - INTRA-UTERINE DEATH [None]
